FAERS Safety Report 6162118-5 (Version None)
Quarter: 2009Q2

REPORT INFORMATION
  Report Type: 
  Country: None (occurrence: None)
  Receive Date: 20090421
  Receipt Date: 20071217
  Transmission Date: 20091009
  Serious: No
  Sender: FDA-Public Use
  Company Number: US-SOLVAY-00207035547

PATIENT
  Age: 49 Year
  Sex: Female
  Weight: 81.5 kg

DRUGS (2)
  1. ATENOLOL [Concomitant]
     Indication: ARRHYTHMIA
     Dosage: DAILY DOSE: 25 MILLIGRAM(S)
     Route: 048
     Dates: start: 20030101
  2. ANDROGEL [Suspect]
     Indication: ACCIDENTAL EXPOSURE
     Dosage: DAILY DOSE:  UNKNOWN
     Route: 062
     Dates: start: 20050101

REACTIONS (6)
  - BLOOD CORTISOL INCREASED [None]
  - BLOOD OESTROGEN DECREASED [None]
  - BLOOD TESTOSTERONE INCREASED [None]
  - HOT FLUSH [None]
  - NERVOUSNESS [None]
  - PROGESTERONE DECREASED [None]
